FAERS Safety Report 8533348-X (Version None)
Quarter: 2012Q3

REPORT INFORMATION
  Report Type: 
  Country: None (occurrence: None)
  Receive Date: 20120724
  Receipt Date: 20120713
  Transmission Date: 20120928
  Serious: Yes (Life-Threatening)
  Sender: FDA-Public Use
  Company Number: JP-VERTEX PHARMACEUTICALS INC.-AE-2012-008221

PATIENT
  Age: 64 Year
  Sex: Female

DRUGS (17)
  1. TALION [Concomitant]
     Route: 048
     Dates: start: 20120402, end: 20120528
  2. ALLOPURINOL [Concomitant]
     Route: 048
     Dates: end: 20120524
  3. TELAVIC (TELAPREVIR) [Suspect]
     Route: 048
     Dates: start: 20120510, end: 20120528
  4. L-CARTIN [Concomitant]
     Route: 048
     Dates: end: 20120528
  5. REBETOL [Concomitant]
     Route: 048
     Dates: start: 20120502, end: 20120516
  6. FERROUS SULFATE TAB [Concomitant]
     Route: 048
     Dates: start: 20120329
  7. ALLEGRA [Concomitant]
     Route: 048
     Dates: start: 20120330, end: 20120418
  8. LOCOID [Concomitant]
     Route: 061
     Dates: start: 20120402, end: 20120528
  9. MYSER OINTMENT [Concomitant]
     Route: 061
     Dates: start: 20120517
  10. TELAVIC (TELAPREVIR) [Suspect]
     Indication: HEPATITIS C
     Route: 048
     Dates: start: 20120329, end: 20120509
  11. L-CARTIN [Concomitant]
     Route: 048
     Dates: start: 20120329
  12. ALLOPURINOL [Concomitant]
     Route: 048
     Dates: start: 20120419, end: 20120419
  13. REBETOL [Concomitant]
     Indication: HEPATITIS C
     Route: 048
     Dates: start: 20120329, end: 20120418
  14. REBETOL [Concomitant]
     Route: 048
     Dates: start: 20120419, end: 20120501
  15. PEG-INTRON [Concomitant]
     Indication: HEPATITIS C
     Route: 051
     Dates: start: 20120329, end: 20120528
  16. FERROUS SULFATE TAB [Concomitant]
     Route: 048
     Dates: end: 20120528
  17. MYSER OINTMENT [Concomitant]
     Route: 061
     Dates: start: 20120528

REACTIONS (1)
  - STEVENS-JOHNSON SYNDROME [None]
